FAERS Safety Report 6012987-4 (Version None)
Quarter: 2008Q4

REPORT INFORMATION
  Report Type: 
  Country: None (occurrence: None)
  Receive Date: 20081219
  Receipt Date: 20081210
  Transmission Date: 20090506
  Serious: Yes (Other)
  Sender: FDA-Public Use
  Company Number: US-BAYER-200840449NA

PATIENT
  Sex: Female

DRUGS (1)
  1. ULTRAVIST (PHARMACY BULK) [Suspect]
     Indication: DRUG USE FOR UNKNOWN INDICATION
     Dates: start: 20081205, end: 20081205

REACTIONS (4)
  - ANAPHYLACTIC REACTION [None]
  - DYSPNOEA [None]
  - URTICARIA [None]
  - VASCULAR INSUFFICIENCY [None]
